FAERS Safety Report 6089732-X (Version None)
Quarter: 2009Q1

REPORT INFORMATION
  Report Type: 
  Country: None (occurrence: None)
  Receive Date: 20090224
  Receipt Date: 20090216
  Transmission Date: 20090719
  Serious: Yes (Other)
  Sender: FDA-Public Use
  Company Number: US-GENENTECH-277442

PATIENT

DRUGS (1)
  1. AVASTIN [Suspect]
     Indication: METASTASES TO CENTRAL NERVOUS SYSTEM

REACTIONS (1)
  - CENTRAL PONTINE MYELINOLYSIS [None]
